FAERS Safety Report 8868085 (Version 1)
Quarter: 2012Q4

REPORT INFORMATION
  Report Type: 
  Country: US (occurrence: US)
  Receive Date: 20121026
  Receipt Date: 20121026
  Transmission Date: 20130627
  Serious: No
  Sender: FDA-Public Use
  Company Number: US-AMGEN-USASP2012040825

PATIENT
  Age: 85 Year
  Sex: Female

DRUGS (4)
  1. ENBREL [Suspect]
     Indication: RHEUMATOID ARTHRITIS
     Dosage: 50 mg, qwk
     Route: 058
     Dates: start: 20120105
  2. CELEBREX [Concomitant]
     Dosage: 100 mg, UNK
     Dates: start: 201112
  3. LYRICA [Concomitant]
     Dosage: 100 mg, UNK
     Dates: start: 201112
  4. PREDNISONE [Concomitant]
     Dosage: 5 mg, UNK
     Dates: start: 201112

REACTIONS (1)
  - Fatigue [Not Recovered/Not Resolved]
